FAERS Safety Report 15152973 (Version 2)
Quarter: 2018Q3

REPORT INFORMATION
  Report Type: Spontaneous
  Country: US (occurrence: US)
  Receive Date: 20180717
  Receipt Date: 20180810
  Transmission Date: 20181010
  Serious: Yes (Hospitalization)
  Sender: FDA-Public Use
  Company Number: US-PFIZER INC-2018285695

PATIENT
  Age: 40 Year
  Sex: Female
  Weight: 51.97 kg

DRUGS (2)
  1. ZYVOX [Suspect]
     Active Substance: LINEZOLID
     Indication: MYCOBACTERIAL INFECTION
     Dosage: 30 ML, 2X/DAY
     Route: 048
     Dates: start: 201806
  2. ZYVOX [Suspect]
     Active Substance: LINEZOLID
     Dosage: 30 ML, 2X/DAY
     Route: 048
     Dates: start: 20180713, end: 20180724

REACTIONS (3)
  - Gastrointestinal haemorrhage [Recovering/Resolving]
  - Product prescribing issue [Unknown]
  - Pharyngeal disorder [Unknown]

NARRATIVE: CASE EVENT DATE: 20180725
